FAERS Safety Report 8623467-1 (Version None)
Quarter: 2012Q3

REPORT INFORMATION
  Report Type: 
  Country: None (occurrence: None)
  Receive Date: 20120827
  Receipt Date: 20120816
  Transmission Date: 20120928
  Serious: Yes (Other)
  Sender: FDA-Public Use
  Company Number: CN-ASTRAZENECA-2011SE28920

PATIENT
  Age: 57 Year
  Sex: Male
  Weight: 50 kg

DRUGS (3)
  1. NEXIUM [Suspect]
     Route: 048
     Dates: end: 20101001
  2. ANTIBIOTICS [Concomitant]
  3. NEXIUM [Suspect]
     Indication: GASTRIC ULCER
     Route: 048
     Dates: start: 20100401, end: 20101001

REACTIONS (5)
  - GASTRIC POLYPS [None]
  - THYROID NEOPLASM [None]
  - BLOOD DISORDER [None]
  - SPLENIC CYST [None]
  - HAEMANGIOMA OF LIVER [None]
